FAERS Safety Report 9703345 (Version 1)
Quarter: 2013Q4

REPORT INFORMATION
  Report Type: Report from Study
  Country: US (occurrence: US)
  Receive Date: 20131122
  Receipt Date: 20131122
  Transmission Date: 20140711
  Serious: Yes (Hospitalization)
  Sender: FDA-Public Use
  Company Number: PHEH2013US024202

PATIENT
  Age: 18 Year
  Sex: Female
  Weight: 42.18 kg

DRUGS (13)
  1. TOBI PODHALER [Suspect]
     Dosage: 4 CAPSULES TWICE A DAY, 28 DAYS ON FOLLOWED BY 28 DAYS OFF
  2. KALYDECO [Concomitant]
  3. PROTONIX [Concomitant]
  4. FLONASE [Concomitant]
  5. SOURCECF PEDIATRIC [Concomitant]
  6. ALBUTEROL [Concomitant]
  7. CREON [Concomitant]
  8. LEVEMIR [Concomitant]
  9. HUMALOG [Concomitant]
  10. FORMULA-D [Concomitant]
  11. PULMOZYME [Concomitant]
  12. SALINE [Concomitant]
  13. ADVAIR DISKUS [Concomitant]

REACTIONS (3)
  - Pneumothorax [Recovered/Resolved]
  - Pneumonia [Recovered/Resolved]
  - Bronchial secretion retention [Recovered/Resolved]
